FAERS Safety Report 9238136 (Version 1)
Quarter: 2013Q1

REPORT INFORMATION
  Report Type: Spontaneous
  Country: US (occurrence: None)
  Receive Date: 20121107
  Receipt Date: 20121107
  Transmission Date: 20140127
  Serious: No
  Sender: FDA-Public Use
  Company Number: 2012HGS-003786

PATIENT
  Age: 27 Year
  Sex: Female
  Weight: 51.26 kg

DRUGS (8)
  1. BENLYSTA [Suspect]
     Indication: SYSTEMIC LUPUS ERYTHEMATOSUS
     Dosage: 1 IN 28 D, INTRAVENOUS DRIP
     Route: 041
     Dates: start: 20120615
  2. PREDNISONE(PREDNISONE) (PREDNISONE) [Concomitant]
  3. IMDUR(ISOSORBIDE MONONITRATE) (ISOSORBIDE MONONITRATE) [Concomitant]
  4. PLAQUENIL(HYDROXYCHLOROQUINE PHOSPHATE) (HYDROXYCHLOROQUINE PHOSPHATE) [Concomitant]
  5. METHOTREXATE(METHOTREXATE) (METHOTREXATE) [Concomitant]
  6. DHEA(PRASTERONE) (PRASTERONE) [Concomitant]
  7. FOLIC ACID(FOLIC ACID) (FOLIC ACID) [Concomitant]
  8. IBUPROFEN(IBUPROFEN) (IBUPROFEN) [Concomitant]

REACTIONS (4)
  - Pharyngeal oedema [None]
  - Malaise [None]
  - Gait disturbance [None]
  - Oedema peripheral [None]
